FAERS Safety Report 16543664 (Version 1)
Quarter: 2019Q3

REPORT INFORMATION
  Report Type: Spontaneous
  Country: US (occurrence: US)
  Receive Date: 20190709
  Receipt Date: 20190709
  Transmission Date: 20191004
  Serious: No
  Sender: FDA-Public Use
  Company Number: US-GLENMARK PHARMACEUTICALS-2019GMK041224

PATIENT

DRUGS (2)
  1. IMIQUIMOD CREAM USP, 5% [Suspect]
     Active Substance: IMIQUIMOD
     Indication: ACTINIC KERATOSIS
     Dosage: 5 DAYS A WEEK FOR 1 MONTH AT NIGHT
     Route: 061
     Dates: start: 20190423, end: 20190507
  2. VITAMINS [Concomitant]
     Active Substance: VITAMINS
     Indication: PRODUCT USED FOR UNKNOWN INDICATION
     Dosage: UNK
     Route: 065

REACTIONS (4)
  - Product use issue [Unknown]
  - Application site scab [Recovering/Resolving]
  - Application site infection [Unknown]
  - Application site discharge [Recovering/Resolving]

NARRATIVE: CASE EVENT DATE: 201904
